FAERS Safety Report 9847114 (Version 1)
Quarter: 2013Q4

REPORT INFORMATION
  Report Type: Spontaneous
  Country: US (occurrence: None)
  Receive Date: 20131223
  Receipt Date: 20131223
  Transmission Date: 20140711
  Serious: Yes (Other)
  Sender: FDA-Public Use
  Company Number: SYM-2013-12382

PATIENT
  Age: 68 Year
  Sex: Male

DRUGS (6)
  1. XENAZINE (TETRABENAZINE) (12.5 MILLIGRAM, TABLET) (TETRABENAZINE) [Suspect]
     Indication: HUNTINGTON^S DISEASE
     Dosage: 12.5 MG, 1 IN 1 D, ORAL
     Route: 048
     Dates: start: 201310, end: 201310
  2. PAXIL (PAROXETINE HYDROCHLORIDE) (PAROXETINE HYDROCHLORIDE) [Concomitant]
  3. NEXIUM (ESOMEPRAZOLE MAGNESIUM) (ESOMEPARAZOLE MAGNESIUM) ? [Concomitant]
  4. TEMAZEPAM (TEMAZEPAM) (15 MILLIGRAM) (TEMAZEPAM) [Concomitant]
  5. ZYRTEC (CETIRIZINE HYDROCHLORIDE) (CETIRIZINE HYDROCHLORIDE)? [Concomitant]
  6. CRESTOR (ROSUVASTATIN CALCIUM) (ROSUVASTATIN CALCIUM) [Concomitant]

REACTIONS (4)
  - Depression [None]
  - Agitation [None]
  - Anxiety [None]
  - Suicidal ideation [None]
